FAERS Safety Report 10694282 (Version 3)
Quarter: 2015Q1

REPORT INFORMATION
  Report Type: Report from Study
  Country: BR (occurrence: BR)
  Receive Date: 20150107
  Receipt Date: 20150312
  Transmission Date: 20150721
  Serious: Yes (Other)
  Sender: FDA-Public Use
  Company Number: PHHY2014BR170207

PATIENT
  Sex: Male
  Weight: 76 kg

DRUGS (10)
  1. HEPA MERZ [Concomitant]
     Indication: HEPATIC CIRRHOSIS
     Dosage: 2 DF, QD
     Route: 048
  2. GALVUS MET [Suspect]
     Active Substance: METFORMIN HYDROCHLORIDE\VILDAGLIPTIN
     Indication: DIABETES MELLITUS
     Dosage: 2 DF, QD
     Route: 065
  3. INSULIN NPH//INSULIN ISOPHANE BOVINE [Suspect]
     Active Substance: INSULIN BEEF
     Indication: DIABETES MELLITUS
     Dosage: 3 DF, QD
     Route: 058
  4. METFORMIN [Suspect]
     Active Substance: METFORMIN HYDROCHLORIDE
     Indication: DIABETES MELLITUS
     Dosage: 700 OR 750 MG, UNK
     Route: 065
  5. ALDACTONE [Concomitant]
     Active Substance: SPIRONOLACTONE
     Indication: HEPATIC CIRRHOSIS
     Dosage: 2 DF, QD
     Route: 048
  6. NEOMICINA [Concomitant]
     Indication: LIVER DISORDER
     Dosage: 2 DF, QD
     Route: 065
  7. SINVASTATINA [Concomitant]
     Active Substance: SIMVASTATIN
     Indication: HEPATIC CIRRHOSIS
     Dosage: 1 DF, QD
     Route: 048
  8. OMEPRAZOLE. [Concomitant]
     Active Substance: OMEPRAZOLE
     Indication: LIVER DISORDER
     Dosage: 2 DF, QD
     Route: 048
  9. PROPANOLOL [Concomitant]
     Active Substance: PROPRANOLOL HYDROCHLORIDE
     Indication: HYPERTENSION
     Dosage: 2 DF, QD
     Route: 048
  10. PROPANOLOL [Concomitant]
     Active Substance: PROPRANOLOL HYDROCHLORIDE
     Indication: PROPHYLAXIS

REACTIONS (5)
  - Varices oesophageal [Recovering/Resolving]
  - Weight decreased [Recovering/Resolving]
  - Oesophageal disorder [Recovering/Resolving]
  - Yellow skin [Recovering/Resolving]
  - Confusional state [Recovering/Resolving]
